FAERS Safety Report 19287864 (Version 2)
Quarter: 2021Q2

REPORT INFORMATION
  Report Type: Spontaneous
  Country: CO (occurrence: CO)
  Receive Date: 20210521
  Receipt Date: 20210528
  Transmission Date: 20210717
  Serious: Yes (Other)
  Sender: FDA-Public Use
  Company Number: CO-PFIZER INC-2021474927

PATIENT
  Sex: Male

DRUGS (1)
  1. XALKORI [Suspect]
     Active Substance: CRIZOTINIB
     Indication: LUNG CARCINOMA CELL TYPE UNSPECIFIED STAGE IV
     Dosage: 250 MG, 2X/DAY (1 TABLET IN THE MORNING AND 1 IN THE EVENING , EVERY 12 HOURS)
     Route: 048
     Dates: start: 2019, end: 202103

REACTIONS (7)
  - Product dose omission issue [Unknown]
  - Near death experience [Recovered/Resolved]
  - Vomiting [Unknown]
  - Productive cough [Unknown]
  - Cough [Not Recovered/Not Resolved]
  - Feeling abnormal [Unknown]
  - Drowning [Unknown]

NARRATIVE: CASE EVENT DATE: 202104
